FAERS Safety Report 23195583 (Version 1)
Quarter: 2023Q4

REPORT INFORMATION
  Report Type: Spontaneous
  Country: NL (occurrence: NL)
  Receive Date: 20231117
  Receipt Date: 20231117
  Transmission Date: 20240109
  Serious: Yes (Other)
  Sender: FDA-Public Use
  Company Number: NL-LRB-00924057

PATIENT
  Age: 38 Year
  Sex: Male
  Weight: 77 kg

DRUGS (3)
  1. HYDROCHLOROTHIAZIDE [Suspect]
     Active Substance: HYDROCHLOROTHIAZIDE
     Indication: Hypertension
     Dosage: 12.5 MILLIGRAM, ONCE A DAY
     Route: 065
     Dates: start: 20231020, end: 20231103
  2. PERINDOPRIL [Suspect]
     Active Substance: PERINDOPRIL
     Indication: Hypertension
     Dosage: 4 MILLIGRAM, ONCE A DAY
     Route: 065
     Dates: start: 20230824, end: 20231103
  3. INDOMETHACIN [Suspect]
     Active Substance: INDOMETHACIN
     Indication: Extraskeletal ossification
     Dosage: 25 MILLIGRAM, 3 TIMES A DAY
     Route: 065
     Dates: start: 20231020, end: 20231103

REACTIONS (1)
  - Acute kidney injury [Recovered/Resolved]
